FAERS Safety Report 5674298-6 (Version None)
Quarter: 2008Q1

REPORT INFORMATION
  Report Type: 
  Country: None (occurrence: None)
  Receive Date: 20080320
  Receipt Date: 20080306
  Transmission Date: 20080703
  Serious: Yes (Hospitalization)
  Sender: FDA-Public Use
  Company Number: NL-BAYER-200814456GPV

PATIENT
  Age: 53 Year
  Sex: Female

DRUGS (2)
  1. AVELOX [Suspect]
     Indication: CHRONIC OBSTRUCTIVE PULMONARY DISEASE
     Dosage: TOTAL DAILY DOSE: 400 MG  UNIT DOSE: 400 MG
     Route: 048
     Dates: start: 20060614, end: 20060614
  2. SOFRADEX [Suspect]
     Indication: EAR PAIN
     Dosage: TOTAL DAILY DOSE: 3 GTT
     Route: 001
     Dates: start: 20060614

REACTIONS (6)
  - ANAPHYLACTIC SHOCK [None]
  - BLOOD PRESSURE DECREASED [None]
  - LIP SWELLING [None]
  - PERIORBITAL OEDEMA [None]
  - RASH GENERALISED [None]
  - SENSATION OF FOREIGN BODY [None]
